FAERS Safety Report 9715020 (Version 1)
Quarter: 2013Q4

REPORT INFORMATION
  Report Type: Spontaneous
  Country: US (occurrence: US)
  Receive Date: 20131126
  Receipt Date: 20131126
  Transmission Date: 20140711
  Serious: No
  Sender: FDA-Public Use
  Company Number: US-NOVEN-13US007769

PATIENT
  Age: 52 Year
  Sex: Female

DRUGS (4)
  1. MINIVELLE [Suspect]
     Indication: NIGHT SWEATS
     Dosage: 0.05 MG/DAY, UNK
     Route: 062
     Dates: start: 20130219
  2. MINIVELLE [Suspect]
     Indication: MOOD SWINGS
  3. OXYBUTYNIN [Concomitant]
     Indication: BLADDER DISORDER
     Dosage: UNK
  4. SPIRONOLACTONE [Concomitant]
     Indication: OEDEMA PERIPHERAL
     Dosage: 25 MG, UNK

REACTIONS (3)
  - Off label use [Not Recovered/Not Resolved]
  - Drug dose omission [Not Recovered/Not Resolved]
  - No adverse event [None]
